FAERS Safety Report 4556574-3 (Version None)
Quarter: 2005Q1

REPORT INFORMATION
  Report Type: 
  Country: None (occurrence: None)
  Receive Date: 20050118
  Receipt Date: 20050105
  Transmission Date: 20050727
  Serious: Yes (Life-Threatening)
  Sender: FDA-Public Use
  Company Number: 2004230338US

PATIENT
  Age: 29 Year
  Sex: Female
  Weight: 6.7994 kg

DRUGS (6)
  1. XANAX [Suspect]
     Indication: PANIC DISORDER
     Dosage: 0.5 MG (AS NEEDED), ORAL
     Route: 048
     Dates: start: 20030908
  2. NEURONTIN [Suspect]
     Indication: BIPOLAR DISORDER
     Dosage: (300 MG, UNKNOWN), ORAL
     Route: 048
     Dates: start: 20011030
  3. TIAGABINE HYDROCHLORIDE (TIAGABINE HYDROCHLORIDE) [Suspect]
     Indication: BIPOLAR DISORDER
     Dosage: 20 MG (1 IN 1 D), ORAL
     Route: 048
     Dates: start: 20040126, end: 20040209
  4. CITALOPRAM HYDROBROMIDE [Suspect]
     Indication: DEPRESSION
     Dosage: 20 MG (UNKNOWN), ORAL
     Route: 048
     Dates: start: 20010116
  5. CLONAZEPAM [Suspect]
     Indication: PANIC DISORDER
     Dosage: UNKNOWN
     Route: 065
     Dates: start: 20010116
  6. LAMOTRIGINE [Suspect]
     Indication: BIPOLAR DISORDER
     Dosage: UNK (1 IN 2 D), UNKNOWN
     Route: 065
     Dates: start: 20040106

REACTIONS (4)
  - DIZZINESS [None]
  - DRUG INTERACTION [None]
  - HYPOGLYCAEMIA [None]
  - VISION BLURRED [None]
